FAERS Safety Report 23701064 (Version 1)
Quarter: 2024Q2

REPORT INFORMATION
  Report Type: Other
  Country: IL (occurrence: IL)
  Receive Date: 20240403
  Receipt Date: 20240403
  Transmission Date: 20240715
  Serious: Yes (Hospitalization)
  Sender: FDA-Public Use
  Company Number: IL-ALVOGEN-2024093289

PATIENT
  Age: 26 Year
  Sex: Male

DRUGS (1)
  1. OXYCODONE AND ACETAMINOPHEN [Suspect]
     Active Substance: ACETAMINOPHEN\OXYCODONE HYDROCHLORIDE
     Indication: Drug abuse
     Route: 055

REACTIONS (7)
  - Thrombocytosis [Unknown]
  - Leukocytosis [Unknown]
  - Inflammation [Unknown]
  - Hyperkeratosis [Unknown]
  - Drug abuse [Unknown]
  - Incorrect route of product administration [Unknown]
  - Wrong technique in device usage process [Unknown]
